FAERS Safety Report 4947508-8 (Version None)
Quarter: 2006Q1

REPORT INFORMATION
  Report Type: 
  Country: None (occurrence: None)
  Receive Date: 20060314
  Receipt Date: 20060228
  Transmission Date: 20060701
  Serious: Yes (Other)
  Sender: FDA-Public Use
  Company Number: 2006-00455

PATIENT
  Age: 78 Year
  Sex: Female
  Weight: 70 kg

DRUGS (5)
  1. KENTERA (WATSON LABORATORIES) (OXYBUTYNIN) TRANSDERMAL PATCH, 3.9 MG [Suspect]
     Indication: HYPERTONIC BLADDER
  2. LANSOPRAZOLE [Concomitant]
  3. XALATAN [Concomitant]
  4. METHOTREXATE [Concomitant]
  5. COSOPT (DORZOLAMIDE HYDROCHLORIDE) [Concomitant]

REACTIONS (1)
  - ANGIONEUROTIC OEDEMA [None]
